FAERS Safety Report 7360764-4 (Version None)
Quarter: 2011Q1

REPORT INFORMATION
  Report Type: 
  Country: None (occurrence: None)
  Receive Date: 20110318
  Receipt Date: 20110307
  Transmission Date: 20110831
  Serious: Yes (Death, Hospitalization)
  Sender: FDA-Public Use
  Company Number: US-BAXTER-2011BH004841

PATIENT
  Age: 57 Year
  Sex: Female
  Weight: 147 kg

DRUGS (1)
  1. DIANEAL [Suspect]
     Indication: PERITONEAL DIALYSIS
     Route: 033
     Dates: end: 20110209

REACTIONS (3)
  - GANGRENE [None]
  - PROTEIN TOTAL DECREASED [None]
  - CARDIAC ARREST [None]
